FAERS Safety Report 6135509-6 (Version None)
Quarter: 2009Q1

REPORT INFORMATION
  Report Type: 
  Country: None (occurrence: None)
  Receive Date: 20090327
  Receipt Date: 20090323
  Transmission Date: 20090719
  Serious: Yes (Other)
  Sender: FDA-Public Use
  Company Number: B0562036A

PATIENT
  Age: 56 Year
  Sex: Male
  Weight: 70 kg

DRUGS (8)
  1. LAMICTAL [Suspect]
     Indication: DEPRESSION
     Route: 048
     Dates: start: 20090207, end: 20090216
  2. LIMAS [Concomitant]
     Route: 048
  3. SEPAZON [Concomitant]
     Route: 048
  4. DEPAKENE [Concomitant]
     Route: 048
  5. BEZATOL SR [Concomitant]
     Route: 048
  6. LEXOTAN [Concomitant]
     Route: 048
  7. VOLTAREN [Concomitant]
     Route: 065
  8. LENDORMIN [Concomitant]
     Route: 048

REACTIONS (4)
  - HYPERKINESIA [None]
  - INSOMNIA [None]
  - LOGORRHOEA [None]
  - MANIA [None]
